FAERS Safety Report 20439176 (Version 1)
Quarter: 2022Q1

REPORT INFORMATION
  Report Type: Spontaneous
  Country: US (occurrence: None)
  Receive Date: 20220204
  Receipt Date: 20220204
  Transmission Date: 20220423
  Serious: Yes (Hospitalization)
  Sender: FDA-Public Use
  Company Number: None

PATIENT
  Age: 23 Year
  Sex: Female
  Weight: 94 kg

DRUGS (1)
  1. VECURONIUM BROMIDE FOR INJECTION [Suspect]
     Active Substance: VECURONIUM BROMIDE
     Indication: Obstructive pancreatitis
     Dosage: FREQUENCY : ONCE;?
     Route: 040
     Dates: start: 20220201, end: 20220201

REACTIONS (1)
  - Drug ineffective [None]

NARRATIVE: CASE EVENT DATE: 20220201
